FAERS Safety Report 4440718-8 (Version None)
Quarter: 2004Q3

REPORT INFORMATION
  Report Type: 
  Country: None (occurrence: None)
  Receive Date: 20040728
  Receipt Date: 20040311
  Transmission Date: 20050211
  Serious: No
  Sender: FDA-Public Use
  Company Number: USA040361856

PATIENT
  Age: 9 Year
  Sex: Male
  Weight: 27 kg

DRUGS (2)
  1. STRATTERA [Suspect]
     Indication: ATTENTION DEFICIT/HYPERACTIVITY DISORDER
     Dosage: 25 MG/1 DAY
     Dates: start: 20030801
  2. MULTI-VITAMIN [Concomitant]

REACTIONS (4)
  - ABNORMAL BEHAVIOUR [None]
  - FEELING HOT [None]
  - NAUSEA [None]
  - VOMITING [None]
